FAERS Safety Report 6284909-2 (Version None)
Quarter: 2009Q3

REPORT INFORMATION
  Report Type: 
  Country: None (occurrence: None)
  Receive Date: 20090727
  Receipt Date: 20090722
  Transmission Date: 20100115
  Serious: Yes (Hospitalization, Disabling)
  Sender: FDA-Public Use
  Company Number: US-B.I. PHARMACEUTICALS,INC./RIDGEFIELD-2009-BP-08726BP

PATIENT
  Sex: Female

DRUGS (2)
  1. SPIRIVA [Suspect]
     Indication: CHRONIC OBSTRUCTIVE PULMONARY DISEASE
     Dosage: 18 MCG
     Route: 055
     Dates: start: 20050101
  2. ADVAIR HFA [Concomitant]
     Indication: CHRONIC OBSTRUCTIVE PULMONARY DISEASE
     Route: 055
     Dates: start: 20050101

REACTIONS (11)
  - BALANCE DISORDER [None]
  - BONE PAIN [None]
  - DEMENTIA [None]
  - FALL [None]
  - FINGER DEFORMITY [None]
  - HYPOAESTHESIA [None]
  - MYOPATHY [None]
  - NERVE INJURY [None]
  - OSTEOPOROSIS [None]
  - PARAESTHESIA [None]
  - WRIST FRACTURE [None]
